FAERS Safety Report 15844575 (Version 2)
Quarter: 2019Q1

REPORT INFORMATION
  Report Type: Spontaneous
  Country: US (occurrence: US)
  Receive Date: 20190118
  Receipt Date: 20190208
  Transmission Date: 20190417
  Serious: Yes (Other)
  Sender: FDA-Public Use
  Company Number: US-009507513-1901USA006168

PATIENT
  Age: 73 Year
  Sex: Female
  Weight: 106.9 kg

DRUGS (8)
  1. JANUVIA [Suspect]
     Active Substance: SITAGLIPTIN PHOSPHATE
     Indication: BLOOD GLUCOSE INCREASED
     Route: 048
  2. SILVADENE [Concomitant]
     Active Substance: SILVER SULFADIAZINE
  3. VITAMIN D [Concomitant]
     Active Substance: CHOLECALCIFEROL
     Indication: NEUROPATHY PERIPHERAL
  4. MEGESTROL ACETATE. [Suspect]
     Active Substance: MEGESTROL ACETATE
  5. PLATINUM [Concomitant]
     Active Substance: PLATINUM
     Indication: ENDOMETRIAL CANCER
  6. TAMOXIFEN [Suspect]
     Active Substance: TAMOXIFEN
  7. DOXYCYCLINE. [Concomitant]
     Active Substance: DOXYCYCLINE
  8. BENADRYL [Concomitant]
     Active Substance: DIPHENHYDRAMINE HYDROCHLORIDE

REACTIONS (5)
  - Cellulitis [Unknown]
  - Fatigue [Not Recovered/Not Resolved]
  - Varicose vein [Unknown]
  - Endometrial cancer [Recovering/Resolving]
  - Skin lesion [Not Recovered/Not Resolved]

NARRATIVE: CASE EVENT DATE: 2016
